FAERS Safety Report 4627274-6 (Version None)
Quarter: 2005Q2

REPORT INFORMATION
  Report Type: 
  Country: None (occurrence: None)
  Receive Date: 20050405
  Receipt Date: 20021002
  Transmission Date: 20051028
  Serious: Yes (Hospitalization)
  Sender: FDA-Public Use
  Company Number: HK-BOEHRINGER INGELHEIM PHARMACEUTICALS, INC.-2002-BP-05151BP

PATIENT
  Sex: Male
  Weight: 64 kg

DRUGS (12)
  1. MICARDIS [Suspect]
     Indication: CARDIOVASCULAR DISORDER
     Route: 048
     Dates: start: 20020101, end: 20020101
  2. MICARDIS [Suspect]
     Indication: CEREBROVASCULAR ACCIDENT PROPHYLAXIS
  3. RAMIPRIL [Suspect]
     Indication: CARDIOVASCULAR DISORDER
     Route: 048
     Dates: start: 20020101, end: 20020101
  4. RAMIPRIL [Suspect]
     Indication: CEREBROVASCULAR ACCIDENT PROPHYLAXIS
  5. IMDUR [Concomitant]
  6. AUGMENTIN '125' [Concomitant]
  7. PEPCIDINE [Concomitant]
  8. CARTIA XT [Concomitant]
  9. HERBESSER SR [Concomitant]
  10. SLOW-K [Concomitant]
     Dates: end: 20020101
  11. NORVASC [Concomitant]
     Dates: end: 20020101
  12. INSULIN [Concomitant]
     Indication: DIABETES MELLITUS

REACTIONS (1)
  - RENAL FAILURE ACUTE [None]
